FAERS Safety Report 10586353 (Version 1)
Quarter: 2014Q4

REPORT INFORMATION
  Report Type: Spontaneous
  Country: US (occurrence: US)
  Receive Date: 20141117
  Receipt Date: 20141117
  Transmission Date: 20150529
  Serious: Yes (Other)
  Sender: FDA-Public Use
  Company Number: US-ROCHE-1487171

PATIENT
  Sex: Male

DRUGS (10)
  1. LAMICTAL [Concomitant]
     Active Substance: LAMOTRIGINE
     Indication: LENNOX-GASTAUT SYNDROME
     Route: 048
  2. KLONOPIN [Suspect]
     Active Substance: CLONAZEPAM
     Indication: LENNOX-GASTAUT SYNDROME
     Route: 048
     Dates: start: 198606
  3. KLONOPIN [Suspect]
     Active Substance: CLONAZEPAM
     Route: 048
  4. KLONOPIN [Suspect]
     Active Substance: CLONAZEPAM
     Route: 048
     Dates: start: 201405
  5. CLONAZEPAM. [Suspect]
     Active Substance: CLONAZEPAM
     Indication: LENNOX-GASTAUT SYNDROME
     Route: 048
  6. DEPAKOTE [Concomitant]
     Active Substance: DIVALPROEX SODIUM
     Indication: LENNOX-GASTAUT SYNDROME
     Route: 048
  7. KLONOPIN [Suspect]
     Active Substance: CLONAZEPAM
     Route: 048
  8. TEGRETOL [Concomitant]
     Active Substance: CARBAMAZEPINE
     Indication: LENNOX-GASTAUT SYNDROME
     Route: 048
  9. DIASTAT (DIAZEPAM RECTAL GEL) [Concomitant]
  10. KLONOPIN [Suspect]
     Active Substance: CLONAZEPAM
     Dosage: 0.5 MG TWICE A DAY AND I MG DAILY
     Route: 065

REACTIONS (7)
  - Insomnia [Unknown]
  - Seizure [Not Recovered/Not Resolved]
  - Abnormal behaviour [Unknown]
  - Drug ineffective [Unknown]
  - Psychomotor hyperactivity [Unknown]
  - Logorrhoea [Unknown]
  - Anxiety [Unknown]
